FAERS Safety Report 18347479 (Version 1)
Quarter: 2020Q4

REPORT INFORMATION
  Report Type: Spontaneous
  Country: US (occurrence: US)
  Receive Date: 20201006
  Receipt Date: 20201006
  Transmission Date: 20210114
  Serious: No
  Sender: FDA-Public Use
  Company Number: US-MICRO LABS LIMITED-ML2020-02136

PATIENT
  Sex: Female
  Weight: 52.21 kg

DRUGS (2)
  1. DALFAMPRIDINE. [Suspect]
     Active Substance: DALFAMPRIDINE
     Indication: GAIT DISTURBANCE
     Dosage: ONE PILL IN THE MORNING AND ONE PILL IN THE EVENING.
     Dates: start: 202006, end: 2020
  2. DALFAMPRIDINE. [Suspect]
     Active Substance: DALFAMPRIDINE
     Dosage: ONCE DAILY
     Dates: start: 20200706

REACTIONS (3)
  - Limb discomfort [Recovering/Resolving]
  - Muscular weakness [Recovering/Resolving]
  - Paraesthesia [Recovering/Resolving]

NARRATIVE: CASE EVENT DATE: 2020
